FAERS Safety Report 14555906 (Version 1)
Quarter: 2018Q1

REPORT INFORMATION
  Report Type: Spontaneous
  Country: ES (occurrence: ES)
  Receive Date: 20180221
  Receipt Date: 20180221
  Transmission Date: 20180509
  Serious: Yes (Other)
  Sender: FDA-Public Use
  Company Number: ES-CIPLA LTD.-2018ES05955

PATIENT

DRUGS (11)
  1. TACROLIMUS. [Suspect]
     Active Substance: TACROLIMUS
     Indication: IMMUNOSUPPRESSION
     Dosage: UNKNOWN
     Route: 065
  2. POSACONAZOLE [Suspect]
     Active Substance: POSACONAZOLE
     Dosage: 400 MG, IN 47 POD
     Route: 065
  3. MICAFUNGIN [Suspect]
     Active Substance: MICAFUNGIN
     Indication: PROPHYLAXIS AGAINST TRANSPLANT REJECTION
     Dosage: 150 MG, QD
     Route: 042
  4. MEROPENEM. [Suspect]
     Active Substance: MEROPENEM
     Indication: PROPHYLAXIS AGAINST TRANSPLANT REJECTION
     Dosage: UNKNOWN
     Route: 065
  5. POSACONAZOLE [Suspect]
     Active Substance: POSACONAZOLE
     Indication: SCEDOSPORIUM INFECTION
     Dosage: 300 MG, BID, LOADING DOSE
     Route: 042
  6. POSACONAZOLE [Suspect]
     Active Substance: POSACONAZOLE
     Dosage: 300 MG, QD
     Route: 042
  7. GANCICLOVIR. [Suspect]
     Active Substance: GANCICLOVIR
     Indication: PROPHYLAXIS AGAINST TRANSPLANT REJECTION
     Dosage: UNKNOWN
     Route: 065
  8. TERBINAFINE. [Suspect]
     Active Substance: TERBINAFINE
     Indication: SCEDOSPORIUM INFECTION
     Dosage: 250 MG, QD
     Route: 065
  9. MYCOPHENOLATE MOFETIL. [Suspect]
     Active Substance: MYCOPHENOLATE MOFETIL
     Indication: IMMUNOSUPPRESSION
     Dosage: UNKNOWN
     Route: 065
  10. SULFAMETHOXAZOLE/TRIMETHOPRIM [Suspect]
     Active Substance: SULFAMETHOXAZOLE\TRIMETHOPRIM
     Indication: PROPHYLAXIS AGAINST TRANSPLANT REJECTION
     Dosage: UNKNOWN
     Route: 065
  11. POSACONAZOLE [Suspect]
     Active Substance: POSACONAZOLE
     Dosage: 450 MG, IN 67 POD
     Route: 065

REACTIONS (4)
  - Tracheobronchitis [Recovered/Resolved]
  - Scedosporium infection [Recovered/Resolved]
  - Condition aggravated [Recovered/Resolved]
  - Anastomotic infection [Recovered/Resolved]
